FAERS Safety Report 25757619 (Version 2)
Quarter: 2025Q3

REPORT INFORMATION
  Report Type: Spontaneous
  Country: EU (occurrence: EU)
  Receive Date: 20250903
  Receipt Date: 20250917
  Transmission Date: 20251020
  Serious: Yes (Hospitalization, Other)
  Sender: MYLAN
  Company Number: None

PATIENT
  Age: 69 Year
  Sex: Female

DRUGS (4)
  1. TRAMADOL [Suspect]
     Active Substance: TRAMADOL
     Indication: Product used for unknown indication
     Dosage: 200 MILLIGRAM, QID, TRAMADOL LP 200MG X4/DAY, OR 800MG/DAY
     Dates: end: 20250904
  2. TRAMADOL [Suspect]
     Active Substance: TRAMADOL
     Dosage: 200 MILLIGRAM, QID, TRAMADOL LP 200MG X4/DAY, OR 800MG/DAY
     Route: 048
     Dates: end: 20250904
  3. TRAMADOL [Suspect]
     Active Substance: TRAMADOL
     Dosage: 200 MILLIGRAM, QID, TRAMADOL LP 200MG X4/DAY, OR 800MG/DAY
     Route: 048
     Dates: end: 20250904
  4. TRAMADOL [Suspect]
     Active Substance: TRAMADOL
     Dosage: 200 MILLIGRAM, QID, TRAMADOL LP 200MG X4/DAY, OR 800MG/DAY
     Dates: end: 20250904

REACTIONS (3)
  - Drug abuse [Recovering/Resolving]
  - Drug ineffective [Recovered/Resolved]
  - Drug tolerance [Recovered/Resolved]

NARRATIVE: CASE EVENT DATE: 20250904
